FAERS Safety Report 8583667-6 (Version None)
Quarter: 2012Q3

REPORT INFORMATION
  Report Type: 
  Country: None (occurrence: None)
  Receive Date: 20120809
  Receipt Date: 20120710
  Transmission Date: 20120928
  Serious: Yes (Hospitalization)
  Sender: FDA-Public Use
  Company Number: JP-009507513-1208JPN001978

PATIENT

DRUGS (19)
  1. REBETOL [Suspect]
     Route: 048
     Dates: start: 20120328, end: 20120509
  2. PREDNISOLONE [Suspect]
     Route: 048
     Dates: start: 20120505, end: 20120509
  3. LOXONIN [Concomitant]
     Indication: PROPHYLAXIS
     Route: 048
     Dates: start: 20120314, end: 20120330
  4. REBETOL [Suspect]
     Route: 048
     Dates: start: 20120516
  5. PREDNISOLONE [Suspect]
     Indication: ADVERSE EVENT
     Route: 048
     Dates: start: 20120428, end: 20120504
  6. PREDNISOLONE [Suspect]
     Route: 048
     Dates: start: 20120516, end: 20120522
  7. REBETOL [Suspect]
     Indication: HEPATITIS C
     Route: 048
     Dates: start: 20120314, end: 20120327
  8. PREDNISOLONE [Suspect]
     Route: 048
     Dates: start: 20120510, end: 20120515
  9. PREDNISOLONE [Suspect]
     Route: 048
     Dates: start: 20120523, end: 20120529
  10. CELEBREX [Concomitant]
     Indication: PROPHYLAXIS
     Route: 048
     Dates: start: 20120425, end: 20120427
  11. TELAVIC [Suspect]
     Indication: HEPATITIS C
     Route: 048
     Dates: start: 20120314, end: 20120427
  12. ASPIRIN [Concomitant]
     Indication: MYOCARDIAL INFARCTION
     Route: 048
  13. MAGMITT [Concomitant]
     Indication: CONSTIPATION
     Route: 048
  14. PEG-INTRON [Suspect]
     Indication: HEPATITIS C
     Dosage: 1.5MCG/KG/WEEK
     Route: 058
     Dates: start: 20120314
  15. REBETOL [Suspect]
     Route: 048
     Dates: start: 20120510, end: 20120515
  16. CANDESARTAN CILEXETIL [Concomitant]
     Indication: HYPERTENSION
     Route: 048
  17. ACETAMINOPHEN [Concomitant]
     Indication: PROPHYLAXIS
     Route: 048
     Dates: start: 20120404
  18. SITAGLIPTIN PHOSPHATE [Concomitant]
     Indication: DIABETES MELLITUS
     Route: 048
     Dates: start: 20120502
  19. TALION (BEPOTASTINE BESYLATE) [Concomitant]
     Route: 048

REACTIONS (1)
  - ERYTHEMA [None]
